FAERS Safety Report 4883307-3 (Version None)
Quarter: 2006Q1

REPORT INFORMATION
  Report Type: 
  Country: None (occurrence: None)
  Receive Date: 20060118
  Receipt Date: 20051208
  Transmission Date: 20060701
  Serious: Yes (Other)
  Sender: FDA-Public Use
  Company Number: 2005AP000991

PATIENT
  Age: 58 Year
  Sex: Female

DRUGS (5)
  1. PAXIL [Suspect]
     Dosage: 30MG PER DAY
     Route: 048
     Dates: start: 19970101, end: 20050901
  2. PAXIL CR [Suspect]
     Dosage: 12.5MG PER DAY
     Route: 048
     Dates: start: 20040203, end: 20051227
  3. PAROXETINE HCL [Suspect]
     Indication: ANXIETY
     Route: 048
     Dates: end: 20051201
  4. NEXIUM [Concomitant]
  5. COZAAR [Concomitant]

REACTIONS (22)
  - ABASIA [None]
  - ABDOMINAL PAIN UPPER [None]
  - BLOOD PRESSURE INCREASED [None]
  - CHEST PAIN [None]
  - DEPRESSION [None]
  - DIABETES MELLITUS [None]
  - DISABILITY [None]
  - DIZZINESS [None]
  - DRUG INEFFECTIVE [None]
  - DYSPNOEA [None]
  - FALL [None]
  - FATIGUE [None]
  - FEELING COLD [None]
  - FEELING HOT [None]
  - HYPOAESTHESIA [None]
  - INSOMNIA [None]
  - IRRITABILITY [None]
  - NAUSEA [None]
  - PAIN [None]
  - PARAESTHESIA [None]
  - SUICIDAL IDEATION [None]
  - TINNITUS [None]
